FAERS Safety Report 8945456 (Version 1)
Quarter: 2012Q4

REPORT INFORMATION
  Report Type: 
  Country: US (occurrence: US)
  Receive Date: 20121205
  Receipt Date: 20121205
  Transmission Date: 20130627
  Serious: Yes (Other)
  Sender: FDA-Public Use
  Company Number: US-ASTRAZENECA-2012SE89555

PATIENT
  Age: 41 Year
  Sex: Female

DRUGS (3)
  1. LISINOPRIL [Suspect]
     Route: 048
  2. ARIPIPRAZOLE [Suspect]
     Route: 065
  3. 5-HTP [Suspect]
     Indication: INSOMNIA

REACTIONS (1)
  - Eosinophilic fasciitis [Recovering/Resolving]
